FAERS Safety Report 23063075 (Version 1)
Quarter: 2023Q4

REPORT INFORMATION
  Report Type: Spontaneous
  Country: CN (occurrence: CN)
  Receive Date: 20231013
  Receipt Date: 20231013
  Transmission Date: 20240110
  Serious: Yes (Other)
  Sender: FDA-Public Use
  Company Number: CN-Accord-383129

PATIENT
  Age: 36 Year
  Sex: Male

DRUGS (11)
  1. ETOPOSIDE [Suspect]
     Active Substance: ETOPOSIDE
     Indication: Adrenocortical carcinoma
     Dosage: DAYS 1-3
     Dates: start: 20210508
  2. PARAPLATIN [Suspect]
     Active Substance: CARBOPLATIN
     Indication: Adrenocortical carcinoma
     Dosage: DAY 1
     Dates: start: 20210508
  3. MITOTANE [Suspect]
     Active Substance: MITOTANE
     Indication: Adrenocortical carcinoma
     Dates: start: 20210501, end: 20210507
  4. SINTILIMAB [Suspect]
     Active Substance: SINTILIMAB
     Indication: Adrenocortical carcinoma
     Dates: start: 20210601, end: 20230308
  5. POTASSIUM CHLORIDE [Concomitant]
     Active Substance: POTASSIUM CHLORIDE
     Indication: Supplementation therapy
  6. MITOTANE [Suspect]
     Active Substance: MITOTANE
     Dates: start: 20210725, end: 20210819
  7. MITOTANE [Suspect]
     Active Substance: MITOTANE
     Dates: start: 20210508, end: 20210531
  8. MITOTANE [Suspect]
     Active Substance: MITOTANE
     Dates: start: 20210601, end: 20210623
  9. MITOTANE [Suspect]
     Active Substance: MITOTANE
     Dates: start: 20210624, end: 20210724
  10. MITOTANE [Suspect]
     Active Substance: MITOTANE
     Indication: Adrenocortical carcinoma
     Dates: start: 20210820, end: 20210914
  11. MITOTANE [Suspect]
     Active Substance: MITOTANE
     Indication: Adrenocortical carcinoma
     Dates: start: 20210915, end: 20220822

REACTIONS (2)
  - Adrenal insufficiency [Recovered/Resolved]
  - Hypothyroidism [Recovered/Resolved]

NARRATIVE: CASE EVENT DATE: 20210725
